FAERS Safety Report 8209632-6 (Version None)
Quarter: 2012Q1

REPORT INFORMATION
  Report Type: 
  Country: None (occurrence: None)
  Receive Date: 20120314
  Receipt Date: 20120305
  Transmission Date: 20120608
  Serious: Yes (Other)
  Sender: FDA-Public Use
  Company Number: RU-ASTRAZENECA-2012SE09347

PATIENT
  Sex: Female

DRUGS (1)
  1. DIPRIVAN [Suspect]
     Indication: ANAESTHESIA
     Dosage: ONCE
     Route: 042

REACTIONS (3)
  - APNOEA [None]
  - PSYCHOMOTOR HYPERACTIVITY [None]
  - DRUG INEFFECTIVE [None]
